FAERS Safety Report 8809813 (Version 3)
Quarter: 2013Q2

REPORT INFORMATION
  Report Type: Spontaneous
  Country: US (occurrence: US)
  Receive Date: 20120926
  Receipt Date: 20130430
  Transmission Date: 20140414
  Serious: Yes (Hospitalization, Other)
  Sender: FDA-Public Use
  Company Number: US-ROCHE-791284

PATIENT
  Age: 30 Year
  Sex: Male
  Weight: 59.02 kg

DRUGS (5)
  1. ACCUTANE [Suspect]
     Indication: ACNE
     Route: 065
     Dates: start: 1992, end: 1993
  2. ACCUTANE [Suspect]
     Route: 065
     Dates: start: 1995, end: 1996
  3. ACCUTANE [Suspect]
     Route: 065
     Dates: start: 1998, end: 1999
  4. ACCUTANE [Suspect]
     Route: 065
     Dates: start: 2000, end: 20010102
  5. ACCUTANE [Suspect]
     Route: 065
     Dates: start: 2002, end: 2002

REACTIONS (7)
  - Small intestinal obstruction [Recovering/Resolving]
  - Lower gastrointestinal haemorrhage [Recovering/Resolving]
  - Inflammatory bowel disease [Unknown]
  - Colitis ulcerative [Unknown]
  - Emotional distress [Not Recovered/Not Resolved]
  - Depression [Unknown]
  - Blood triglycerides increased [Unknown]
